FAERS Safety Report 7114143-5 (Version None)
Quarter: 2010Q4

REPORT INFORMATION
  Report Type: 
  Country: None (occurrence: None)
  Receive Date: 20101119
  Receipt Date: 20101109
  Transmission Date: 20110411
  Serious: Yes (Hospitalization, Other)
  Sender: FDA-Public Use
  Company Number: US-ABBOTT-10P-163-0684475-00

PATIENT
  Sex: Female
  Weight: 106.24 kg

DRUGS (22)
  1. HUMIRA [Suspect]
     Indication: PSORIATIC ARTHROPATHY
     Dates: start: 20060101, end: 20060101
  2. HUMIRA [Suspect]
     Dates: start: 20070101, end: 20080401
  3. HUMIRA [Suspect]
     Dates: start: 20100301
  4. CELEBREX [Concomitant]
     Indication: PSORIATIC ARTHROPATHY
  5. CYMBALTA [Concomitant]
     Indication: DEPRESSION
     Dates: start: 20090101
  6. BUSPAR [Concomitant]
     Indication: DEPRESSION
  7. OMEPRAZOLE [Concomitant]
     Indication: GASTRIC PH DECREASED
  8. OMEPRAZOLE [Concomitant]
     Indication: PROPHYLAXIS
  9. SINGULAIR [Concomitant]
     Indication: ASTHMA
  10. SYNTHROID [Concomitant]
     Indication: HYPOTHYROIDISM
  11. FOLATE [Concomitant]
     Indication: VITAMIN SUPPLEMENTATION
  12. FOLATE [Concomitant]
     Indication: GASTRIC BYPASS
  13. VITAMIN D3 [Concomitant]
     Indication: VITAMIN SUPPLEMENTATION
  14. VITAMIN D3 [Concomitant]
     Indication: PAIN
  15. LOVAZA [Concomitant]
     Indication: PRODUCT USED FOR UNKNOWN INDICATION
  16. CALCIUM WITH MAGNESIUM [Concomitant]
     Indication: PRODUCT USED FOR UNKNOWN INDICATION
  17. PRENATAL VITAMINS [Concomitant]
     Indication: PRODUCT USED FOR UNKNOWN INDICATION
  18. FLEXERIL [Concomitant]
     Indication: HYPOTONIA
     Dosage: EVERY NIGHT
  19. FLEXERIL [Concomitant]
     Indication: FIBROMYALGIA
  20. LUNESTA [Concomitant]
     Indication: INSOMNIA
     Dosage: EVERY NIGHT
  21. FENTANYL [Concomitant]
     Indication: PAIN
  22. GABAPENTIN [Concomitant]
     Indication: PRODUCT USED FOR UNKNOWN INDICATION

REACTIONS (24)
  - ABDOMINAL PAIN [None]
  - ABDOMINAL RIGIDITY [None]
  - ARTHRALGIA [None]
  - ATTENTION DEFICIT/HYPERACTIVITY DISORDER [None]
  - BIPOLAR DISORDER [None]
  - DEVICE RELATED INFECTION [None]
  - DYSPNOEA [None]
  - FEELING ABNORMAL [None]
  - FISTULA DISCHARGE [None]
  - HALLUCINATION [None]
  - HYPOAESTHESIA [None]
  - HYPOVENTILATION [None]
  - INCISIONAL HERNIA [None]
  - JOINT RANGE OF MOTION DECREASED [None]
  - MEDICAL DEVICE SITE REACTION [None]
  - NAIL PSORIASIS [None]
  - OESOPHAGEAL DISORDER [None]
  - PNEUMONIA [None]
  - POST PROCEDURAL FISTULA [None]
  - PSORIASIS [None]
  - RASH [None]
  - SKIN EXFOLIATION [None]
  - STAPHYLOCOCCAL SEPSIS [None]
  - WEIGHT INCREASED [None]
